FAERS Safety Report 8812694 (Version 2)
Quarter: 2012Q4

REPORT INFORMATION
  Report Type: Report from Study
  Country: AT (occurrence: AT)
  Receive Date: 20120927
  Receipt Date: 20121030
  Transmission Date: 20130627
  Serious: Yes (Hospitalization)
  Sender: FDA-Public Use
  Company Number: AT-ABBOTT-12P-009-0983868-00

PATIENT
  Age: 34 Year
  Sex: Male
  Weight: 95 kg

DRUGS (5)
  1. HUMIRA [Suspect]
     Indication: CROHN^S DISEASE
     Dates: start: 20120619
  2. LOVENOX [Concomitant]
     Indication: PRODUCT USED FOR UNKNOWN INDICATION
     Route: 058
  3. NAPROBENE [Concomitant]
     Indication: PRODUCT USED FOR UNKNOWN INDICATION
     Dosage: 500mg on demand
  4. PANTOLOC [Concomitant]
     Indication: PROPHYLAXIS AGAINST GASTROINTESTINAL ULCER
     Dosage: on demand
  5. PANTOLOC [Concomitant]
     Indication: GASTRITIS PROPHYLAXIS

REACTIONS (2)
  - Bone lesion [Not Recovered/Not Resolved]
  - Fall [Unknown]
